FAERS Safety Report 8314372-9 (Version None)
Quarter: 2012Q2

REPORT INFORMATION
  Report Type: 
  Country: None (occurrence: None)
  Receive Date: 20120426
  Receipt Date: 20120425
  Transmission Date: 20120825
  Serious: Yes (Other)
  Sender: FDA-Public Use
  Company Number: US-ROCHE-1045152

PATIENT
  Sex: Male
  Weight: 94.886 kg

DRUGS (1)
  1. ZELBORAF [Suspect]
     Indication: MALIGNANT MELANOMA
     Route: 048

REACTIONS (7)
  - SKIN TOXICITY [None]
  - PHOTOSENSITIVITY REACTION [None]
  - SUNBURN [None]
  - MALAISE [None]
  - FATIGUE [None]
  - EXTREMITY NECROSIS [None]
  - NAUSEA [None]
